FAERS Safety Report 4684904-0 (Version None)
Quarter: 2005Q2

REPORT INFORMATION
  Report Type: 
  Country: None (occurrence: None)
  Receive Date: 20050608
  Receipt Date: 20050513
  Transmission Date: 20051028
  Serious: Yes (Hospitalization)
  Sender: FDA-Public Use
  Company Number: FR-ABBOTT-05P-056-0300529-00

PATIENT
  Age: 3 Year
  Sex: Female

DRUGS (2)
  1. DEPAKENE [Suspect]
     Indication: MYOCLONIC EPILEPSY
     Route: 048
     Dates: start: 20041101, end: 20050410
  2. DEPAKENE [Suspect]
     Indication: PETIT MAL EPILEPSY

REACTIONS (10)
  - AMMONIA DECREASED [None]
  - AMMONIA INCREASED [None]
  - ANOREXIA [None]
  - ASTHENIA [None]
  - BLOOD FIBRINOGEN DECREASED [None]
  - DISSEMINATED INTRAVASCULAR COAGULATION [None]
  - HEPATIC FAILURE [None]
  - LIVER TRANSPLANT [None]
  - LOSS OF CONSCIOUSNESS [None]
  - VOMITING [None]
